FAERS Safety Report 17284535 (Version 2)
Quarter: 2020Q1

REPORT INFORMATION
  Report Type: Spontaneous
  Country: US (occurrence: US)
  Receive Date: 20200117
  Receipt Date: 20200130
  Transmission Date: 20200409
  Serious: Yes (Other)
  Sender: FDA-Public Use
  Company Number: US-BAUSCH-BL-2020-001180

PATIENT
  Age: 78 Year
  Sex: Female

DRUGS (9)
  1. PRED FORTE [Concomitant]
     Active Substance: PREDNISOLONE ACETATE
     Indication: PREOPERATIVE CARE
     Dosage: RIGHT EYE AND LEFT EYE
  2. LOTEMAX [Suspect]
     Active Substance: LOTEPREDNOL ETABONATE
     Dosage: RIGHT AND LEFT EYE (ONE DROP)
     Route: 047
  3. LOTEMAX [Suspect]
     Active Substance: LOTEPREDNOL ETABONATE
     Indication: INFLAMMATION
     Dosage: RIGHT AND LEFT EYE (ONE DROP)
     Route: 047
  4. CILOXAN [Concomitant]
     Active Substance: CIPROFLOXACIN HYDROCHLORIDE
     Indication: PREOPERATIVE CARE
  5. LOTEMAX [Suspect]
     Active Substance: LOTEPREDNOL ETABONATE
     Indication: POSTOPERATIVE CARE
     Dosage: RIGHT AND LEFT EYE (ONE DROP)
     Route: 047
  6. LOTEMAX [Suspect]
     Active Substance: LOTEPREDNOL ETABONATE
     Dosage: RIGHT AND LEFT EYE (ONE DROP)
     Route: 047
     Dates: end: 20191220
  7. CELLUGEL [Concomitant]
     Indication: PREOPERATIVE CARE
  8. AMVISC [Concomitant]
     Indication: PREOPERATIVE CARE
  9. VIGAMOX [Concomitant]
     Active Substance: MOXIFLOXACIN HYDROCHLORIDE
     Indication: PREOPERATIVE CARE

REACTIONS (3)
  - Cystoid macular oedema [Not Recovered/Not Resolved]
  - Product prescribing error [Unknown]
  - Drug ineffective [Unknown]

NARRATIVE: CASE EVENT DATE: 20191220
